FAERS Safety Report 5162362-X (Version None)
Quarter: 2006Q4

REPORT INFORMATION
  Report Type: 
  Country: None (occurrence: None)
  Receive Date: 20061130
  Receipt Date: 20061127
  Transmission Date: 20070319
  Serious: Yes (Hospitalization)
  Sender: FDA-Public Use
  Company Number: JP-ABBOTT-06P-087-0351612-00

PATIENT
  Age: 57 Year
  Sex: Male
  Weight: 84.4 kg

DRUGS (6)
  1. CLARITHROMYCIN [Suspect]
     Indication: NASOPHARYNGITIS
     Route: 048
     Dates: start: 20060803, end: 20060808
  2. L-CARBOCISTEINE [Suspect]
     Indication: NASOPHARYNGITIS
     Route: 048
     Dates: start: 20060803, end: 20060808
  3. CLOFEDANOL HYDROCHLORIDE [Suspect]
     Indication: NASOPHARYNGITIS
     Route: 048
     Dates: start: 20060803, end: 20060808
  4. TERBUTALINE SULFATE [Suspect]
     Indication: NASOPHARYNGITIS
     Route: 048
     Dates: start: 20060803, end: 20060808
  5. BARIUM SULFATE [Concomitant]
     Indication: X-RAY GASTROINTESTINAL TRACT
     Route: 048
     Dates: start: 20060808, end: 20060808
  6. PURGATIVE (ENEMA) [Concomitant]
     Indication: DRUG USE FOR UNKNOWN INDICATION
     Route: 048
     Dates: start: 20060808, end: 20060808

REACTIONS (1)
  - TOXIC SKIN ERUPTION [None]
